FAERS Safety Report 7878838-8 (Version None)
Quarter: 2011Q4

REPORT INFORMATION
  Report Type: 
  Country: None (occurrence: None)
  Receive Date: 20111024
  Receipt Date: 20110909
  Transmission Date: 20120403
  Serious: Yes (Other)
  Sender: FDA-Public Use
  Company Number: AMAG201100193

PATIENT
  Age: 97 Year
  Sex: Female
  Weight: 60.3 kg

DRUGS (6)
  1. FERAHEME [Suspect]
     Indication: IRON DEFICIENCY ANAEMIA
     Dosage: 5.5 ML, SINGLE, INTRAVENOUS
     Route: 042
     Dates: start: 20110907, end: 20110907
  2. FISH OIL (FISH OIL) CAPSULE [Concomitant]
  3. MULTIVITAMIN (VITAMINS NOS) TABLET [Concomitant]
  4. CALCIUM (CALCIUM GLUBIONATE) [Concomitant]
  5. LASIX [Concomitant]
  6. NORVASC [Concomitant]

REACTIONS (7)
  - BACK PAIN [None]
  - HYPERSENSITIVITY [None]
  - DIZZINESS [None]
  - THROAT TIGHTNESS [None]
  - ASTHENIA [None]
  - COUGH [None]
  - HYPERTENSION [None]
